FAERS Safety Report 4796514-5 (Version None)
Quarter: 2005Q4

REPORT INFORMATION
  Report Type: 
  Country: None (occurrence: None)
  Receive Date: 20051011
  Receipt Date: 20050322
  Transmission Date: 20060501
  Serious: Yes (Hospitalization)
  Sender: FDA-Public Use
  Company Number: 2005-BP-04731BP

PATIENT
  Age: 49 Year
  Sex: Female

DRUGS (4)
  1. CATAPRES [Suspect]
     Indication: HOT FLUSH
     Dosage: 0.3 MG (7.5 MG,ONE PATCH Q WEEK), TO
     Route: 061
     Dates: start: 20010101
  2. TOPAMAX [Concomitant]
  3. LAMICTAL [Concomitant]
  4. CYMBALTA (ARICLAIM) [Concomitant]

REACTIONS (1)
  - BLOOD PRESSURE INCREASED [None]
